FAERS Safety Report 23278134 (Version 1)
Quarter: 2023Q4

REPORT INFORMATION
  Report Type: Spontaneous
  Country: US (occurrence: None)
  Receive Date: 20231207
  Receipt Date: 20231207
  Transmission Date: 20240110
  Serious: Yes (Hospitalization)
  Sender: FDA-Public Use
  Company Number: None

PATIENT
  Age: 9 Year
  Sex: Female
  Weight: 35.3 kg

DRUGS (1)
  1. CALASPARGASE PEGOL-MKNL [Suspect]
     Active Substance: CALASPARGASE PEGOL-MKNL
     Indication: Acute leukaemia
     Dosage: FREQUENCY : ONCE;?
     Route: 042
     Dates: start: 20230503, end: 20230524

REACTIONS (2)
  - Abdominal pain [None]
  - Hypersensitivity [None]

NARRATIVE: CASE EVENT DATE: 20230524
